FAERS Safety Report 13859840 (Version 5)
Quarter: 2017Q4

REPORT INFORMATION
  Report Type: Report from Study
  Country: BR (occurrence: BR)
  Receive Date: 20170811
  Receipt Date: 20171011
  Transmission Date: 20180320
  Serious: Yes (Death, Other)
  Sender: FDA-Public Use
  Company Number: PHHY2016BR003979

PATIENT
  Sex: Female
  Weight: 60 kg

DRUGS (17)
  1. RAZAPINA [Concomitant]
     Active Substance: MIRTAZAPINE
     Indication: PRODUCT USED FOR UNKNOWN INDICATION
     Dosage: UNK
     Route: 065
  2. EXELON PATCH [Suspect]
     Active Substance: RIVASTIGMINE
     Indication: SENILE DEMENTIA
     Dosage: 4.6 MG, QD, PATCH (5 CM2)
     Route: 062
     Dates: start: 201502
  3. ZOLOFT [Concomitant]
     Active Substance: SERTRALINE HYDROCHLORIDE
     Indication: DEPRESSION
     Dosage: 1 DF, QD
     Route: 048
  4. REMERON [Concomitant]
     Active Substance: MIRTAZAPINE
     Indication: PARKINSON^S DISEASE
     Dosage: 1 DF, QD, 1 YEAR AGO
     Route: 048
  5. EXELON PATCH [Suspect]
     Active Substance: RIVASTIGMINE
     Indication: DYSSTASIA
  6. PROLOPA [Concomitant]
     Active Substance: BENSERAZIDE\LEVODOPA
     Indication: PARKINSON^S DISEASE
     Dosage: 2 DF, QD, STARTED 1 YEAR AGO
     Route: 048
     Dates: end: 201601
  7. PROLOPA [Concomitant]
     Active Substance: BENSERAZIDE\LEVODOPA
     Dosage: 4 DF, QD
     Route: 048
     Dates: start: 201601
  8. SEROQUEL [Concomitant]
     Active Substance: QUETIAPINE FUMARATE
     Indication: DEPRESSION
     Dosage: 2 DF, QD
     Route: 048
     Dates: start: 201601
  9. RIVOTRIL [Concomitant]
     Active Substance: CLONAZEPAM
     Indication: PRODUCT USED FOR UNKNOWN INDICATION
     Dosage: UNK
     Route: 065
  10. EXELON PATCH [Suspect]
     Active Substance: RIVASTIGMINE
     Indication: FALL
  11. QUETIAPINE. [Concomitant]
     Active Substance: QUETIAPINE
     Indication: PRODUCT USED FOR UNKNOWN INDICATION
     Dosage: UNK
     Route: 065
  12. NEUPRO [Concomitant]
     Active Substance: ROTIGOTINE
     Indication: PRODUCT USED FOR UNKNOWN INDICATION
     Dosage: 8 MG, UNK
     Route: 065
  13. EXELON PATCH [Suspect]
     Active Substance: RIVASTIGMINE
     Indication: FATIGUE
  14. TENORETIC [Concomitant]
     Active Substance: ATENOLOL\CHLORTHALIDONE
     Indication: HYPERTENSION
     Dosage: 1 DF, QD, STARTED 1 YEAR AGO
     Route: 048
  15. EXELON PATCH [Suspect]
     Active Substance: RIVASTIGMINE
     Indication: MOVEMENT DISORDER
  16. DEPURA [Concomitant]
     Active Substance: CHOLECALCIFEROL
     Indication: VITAMIN D DEFICIENCY
     Dosage: 10 DRP, QD, STARTED 1 YEAR AGO
     Route: 048
  17. EXELON PATCH [Suspect]
     Active Substance: RIVASTIGMINE
     Indication: PARKINSON^S DISEASE
     Dosage: 9.5 MG, QD, PATCH (10 CM2), 8 MONTHS AGO
     Route: 062

REACTIONS (21)
  - Condition aggravated [Not Recovered/Not Resolved]
  - Loss of consciousness [Recovered/Resolved]
  - Decubitus ulcer [Not Recovered/Not Resolved]
  - Body height decreased [Unknown]
  - Incorrect drug administration duration [Unknown]
  - Speech disorder [Not Recovered/Not Resolved]
  - Gait inability [Unknown]
  - Somnolence [Not Recovered/Not Resolved]
  - Dysstasia [Not Recovered/Not Resolved]
  - Muscle rigidity [Not Recovered/Not Resolved]
  - Death [Fatal]
  - Weight decreased [Not Recovered/Not Resolved]
  - Abnormal behaviour [Not Recovered/Not Resolved]
  - Asthenia [Not Recovered/Not Resolved]
  - Product use in unapproved indication [Unknown]
  - Eating disorder [Not Recovered/Not Resolved]
  - Parkinson^s disease [Not Recovered/Not Resolved]
  - Gait disturbance [Not Recovered/Not Resolved]
  - Muscular weakness [Not Recovered/Not Resolved]
  - Dysphagia [Not Recovered/Not Resolved]
  - Drug ineffective [Unknown]
